FAERS Safety Report 26127978 (Version 1)
Quarter: 2025Q4

REPORT INFORMATION
  Report Type: Other
  Country: JP (occurrence: JP)
  Receive Date: 20251206
  Receipt Date: 20251206
  Transmission Date: 20260118
  Serious: Yes (Other)
  Sender: ANI
  Company Number: JP-ANIPHARMA-035499

PATIENT
  Age: 8 Decade
  Sex: Female

DRUGS (3)
  1. ANASTROZOLE [Suspect]
     Active Substance: ANASTROZOLE
     Indication: Breast cancer female
  2. ZOLPIDEM TARTRATE [Concomitant]
     Active Substance: ZOLPIDEM TARTRATE
     Indication: Breast cancer female
  3. PREDNISOLONE [Concomitant]
     Active Substance: PREDNISOLONE
     Indication: Breast cancer female
     Dosage: MAINTAINED WITH 5 MG

REACTIONS (2)
  - Drug-induced liver injury [Recovering/Resolving]
  - Autoimmune hepatitis [Unknown]
